FAERS Safety Report 6827755-0 (Version None)
Quarter: 2010Q3

REPORT INFORMATION
  Report Type: 
  Country: None (occurrence: None)
  Receive Date: 20100709
  Receipt Date: 20100628
  Transmission Date: 20110219
  Serious: No
  Sender: FDA-Public Use
  Company Number: B0610889A

PATIENT
  Sex: Female
  Weight: 58 kg

DRUGS (5)
  1. RELENZA [Suspect]
     Indication: ANTIVIRAL PROPHYLAXIS
     Dosage: 10MG PER DAY
     Route: 055
     Dates: start: 20091125, end: 20091129
  2. INFLUENZA HA VACCINE [Concomitant]
     Indication: ANTIVIRAL PROPHYLAXIS
     Route: 065
     Dates: start: 20091117, end: 20091117
  3. CHINESE MEDICINE [Concomitant]
     Dosage: 3IUAX PER DAY
     Route: 065
     Dates: start: 20091125, end: 20091127
  4. RITODRINE HYDROCHLORIDE [Concomitant]
     Dosage: 16IUAX PER DAY
     Route: 065
     Dates: start: 20091104, end: 20091117
  5. CEFZON [Concomitant]
     Route: 048
     Dates: start: 20091205, end: 20091205

REACTIONS (1)
  - DRUG EXPOSURE DURING PREGNANCY [None]
